FAERS Safety Report 23101699 (Version 3)
Quarter: 2023Q4

REPORT INFORMATION
  Report Type: Report from Study
  Country: US (occurrence: US)
  Receive Date: 20231025
  Receipt Date: 20231212
  Transmission Date: 20240109
  Serious: Yes (Hospitalization)
  Sender: FDA-Public Use
  Company Number: US-BoehringerIngelheim-2023-BI-253145

PATIENT
  Age: 75 Year
  Sex: Male
  Weight: 97 kg

DRUGS (2)
  1. OFEV [Suspect]
     Active Substance: NINTEDANIB
     Indication: Idiopathic pulmonary fibrosis
     Route: 048
     Dates: start: 20230728
  2. OFEV [Suspect]
     Active Substance: NINTEDANIB
     Route: 048
     Dates: start: 202308

REACTIONS (12)
  - Fall [Unknown]
  - Hip arthroplasty [Unknown]
  - COVID-19 [Unknown]
  - Cellulitis [Unknown]
  - Fall [Recovered/Resolved]
  - Diarrhoea [Unknown]
  - Diarrhoea [Recovered/Resolved]
  - Fatigue [Not Recovered/Not Resolved]
  - Migraine [Unknown]
  - Muscular weakness [Unknown]
  - Asthenia [Unknown]
  - Bedridden [Unknown]

NARRATIVE: CASE EVENT DATE: 20230101
